FAERS Safety Report 10922321 (Version 3)
Quarter: 2015Q2

REPORT INFORMATION
  Report Type: Spontaneous
  Country: JP (occurrence: JP)
  Receive Date: 20150317
  Receipt Date: 20150511
  Transmission Date: 20150821
  Serious: Yes (Hospitalization)
  Sender: FDA-Public Use
  Company Number: JP-ELI_LILLY_AND_COMPANY-JP201503003137

PATIENT
  Age: 62 Year
  Sex: Female
  Weight: 44.5 kg

DRUGS (5)
  1. CONTOMIN                           /00011902/ [Suspect]
     Active Substance: CHLORPROMAZINE HYDROCHLORIDE
     Indication: INSOMNIA
  2. BENZALIN                           /00036201/ [Suspect]
     Active Substance: NITRAZEPAM
     Indication: INSOMNIA
     Dosage: 10 MG, QD
     Route: 048
     Dates: start: 20150221, end: 20150304
  3. CONTOMIN                           /00011902/ [Suspect]
     Active Substance: CHLORPROMAZINE HYDROCHLORIDE
     Indication: DEPRESSION
     Dosage: 75 MG, QD
     Route: 048
     Dates: start: 20150221, end: 20150304
  4. CYMBALTA [Suspect]
     Active Substance: DULOXETINE HYDROCHLORIDE
     Dosage: 40 MG, QD
     Route: 048
     Dates: start: 20150225, end: 20150304
  5. CYMBALTA [Suspect]
     Active Substance: DULOXETINE HYDROCHLORIDE
     Indication: DEPRESSION
     Dosage: 20 MG, QD
     Route: 048
     Dates: start: 20150217, end: 20150224

REACTIONS (5)
  - Dysphoria [Unknown]
  - Drug-induced liver injury [Recovered/Resolved]
  - Akathisia [Unknown]
  - Tremor [Unknown]
  - Head discomfort [Unknown]

NARRATIVE: CASE EVENT DATE: 20150221
